FAERS Safety Report 7941798-5 (Version None)
Quarter: 2011Q4

REPORT INFORMATION
  Report Type: 
  Country: None (occurrence: None)
  Receive Date: 20111128
  Receipt Date: 20111128
  Transmission Date: 20120403
  Serious: Yes (Other)
  Sender: FDA-Public Use
  Company Number: None

PATIENT
  Age: 47 Year
  Sex: Female
  Weight: 51.709 kg

DRUGS (1)
  1. ANDROGEL [Suspect]
     Dosage: 2X DAILY
     Dates: start: 20110812, end: 20111125

REACTIONS (10)
  - ACNE [None]
  - POLLAKIURIA [None]
  - BREAST ENLARGEMENT [None]
  - HOSTILITY [None]
  - EXPOSURE VIA PARTNER [None]
  - CHEST DISCOMFORT [None]
  - SKIN IRRITATION [None]
  - BREAST PAIN [None]
  - DEPRESSION [None]
  - UNEVALUABLE EVENT [None]
